FAERS Safety Report 17699545 (Version 2)
Quarter: 2020Q2

REPORT INFORMATION
  Report Type: Report from Study
  Country: None (occurrence: US)
  Receive Date: 20200423
  Receipt Date: 20200428
  Transmission Date: 20200714
  Serious: No
  Sender: FDA-Public Use
  Company Number: US-BIOVITRUM-2020US0359

PATIENT
  Age: 62 Year
  Sex: Male

DRUGS (2)
  1. KINERET [Suspect]
     Active Substance: ANAKINRA
     Indication: PRODUCT USED FOR UNKNOWN INDICATION
     Route: 058
     Dates: start: 20191009
  2. KINERET [Suspect]
     Active Substance: ANAKINRA
     Dates: start: 20190924

REACTIONS (7)
  - Productive cough [Unknown]
  - Product dose omission [Unknown]
  - Dry throat [Unknown]
  - Upper respiratory tract infection [Unknown]
  - Off label use [Unknown]
  - Rhinorrhoea [Unknown]
  - Intentional product misuse [Unknown]

NARRATIVE: CASE EVENT DATE: 20190924
